FAERS Safety Report 15470474 (Version 1)
Quarter: 2018Q4

REPORT INFORMATION
  Report Type: Spontaneous
  Country: AU (occurrence: AU)
  Receive Date: 20181005
  Receipt Date: 20181005
  Transmission Date: 20190205
  Serious: Yes (Hospitalization, Other)
  Sender: FDA-Public Use
  Company Number: AU-BAUSCH-BL-2018-026644

PATIENT
  Age: 77 Year
  Sex: Male
  Weight: 125 kg

DRUGS (1)
  1. PREDNISOLONE. [Suspect]
     Active Substance: PREDNISOLONE
     Indication: TUBULOINTERSTITIAL NEPHRITIS
     Route: 065

REACTIONS (1)
  - Pneumocystis jirovecii pneumonia [Recovering/Resolving]
